FAERS Safety Report 24291479 (Version 1)
Quarter: 2024Q3

REPORT INFORMATION
  Report Type: Spontaneous
  Country: US (occurrence: None)
  Receive Date: 20240906
  Receipt Date: 20240906
  Transmission Date: 20241017
  Serious: No
  Sender: DOMPE FARMACEUTICI
  Company Number: US-FARMAPROD-202308-202309-2661

PATIENT
  Age: 69 Year
  Sex: Female
  Weight: 53.52 kg

DRUGS (5)
  1. OXERVATE [Suspect]
     Active Substance: CENEGERMIN-BKBJ
     Indication: Neurotrophic keratopathy
     Route: 047
     Dates: start: 20230828
  2. ELIQUIS [Concomitant]
     Active Substance: APIXABAN
  3. METOPROLOL TARTRATE [Concomitant]
     Active Substance: METOPROLOL TARTRATE
  4. METOPROLOL SUCCINATE [Concomitant]
     Active Substance: METOPROLOL SUCCINATE
  5. PROLIA [Concomitant]
     Active Substance: DENOSUMAB
     Dosage: 60 MG/ML SYRINGE

REACTIONS (2)
  - Eye pain [Unknown]
  - Headache [Unknown]

NARRATIVE: CASE EVENT DATE: 20230801
